FAERS Safety Report 14381529 (Version 1)
Quarter: 2018Q1

REPORT INFORMATION
  Report Type: Spontaneous
  Country: NL (occurrence: NL)
  Receive Date: 20180112
  Receipt Date: 20180112
  Transmission Date: 20180509
  Serious: Yes (Hospitalization)
  Sender: FDA-Public Use
  Company Number: NL-MYLANLABS-2017M1079440

PATIENT
  Age: 85 Year
  Sex: Female

DRUGS (4)
  1. METFORMIN [Suspect]
     Active Substance: METFORMIN HYDROCHLORIDE
     Indication: TYPE 2 DIABETES MELLITUS
     Dosage: UNK NO OF TABLETS
     Route: 065
  2. FLUCLOXACILLIN [Concomitant]
     Active Substance: FLUCLOXACILLIN
     Indication: ERYSIPELAS
     Route: 042
  3. CLINDAMYCIN. [Concomitant]
     Active Substance: CLINDAMYCIN
     Indication: ERYSIPELAS
     Route: 048
  4. CIPROFLOXACIN. [Concomitant]
     Active Substance: CIPROFLOXACIN
     Indication: ERYSIPELAS
     Route: 048

REACTIONS (7)
  - Lactic acidosis [Recovered/Resolved]
  - Blood pH decreased [Recovered/Resolved]
  - Vomiting [Recovered/Resolved]
  - Nausea [Recovered/Resolved]
  - Haemodynamic instability [Recovered/Resolved]
  - Decreased appetite [Recovered/Resolved]
  - Blood lactic acid increased [Recovered/Resolved]
